FAERS Safety Report 5510179-6 (Version None)
Quarter: 2007Q4

REPORT INFORMATION
  Report Type: 
  Country: None (occurrence: None)
  Receive Date: 20071108
  Receipt Date: 20071030
  Transmission Date: 20080405
  Serious: Yes (Other)
  Sender: FDA-Public Use
  Company Number: GB-ROCHE-528730

PATIENT
  Age: 40 Year
  Sex: Female
  Weight: 107.5 kg

DRUGS (4)
  1. ORLISTAT [Suspect]
     Indication: OBESITY
     Route: 048
     Dates: start: 20070605
  2. FENTANYL [Concomitant]
     Dosage: ROUTE: DERMAL. GIVEN 25 MCS, CHANGED EVERY THIRD DAY.
     Route: 003
  3. SENNA [Concomitant]
     Indication: CONSTIPATION
     Dosage: GIVEN TWO TABLETS AT NIGHT.
     Route: 048
  4. CO-CODAMOL [Concomitant]
     Dosage: GIVEN 6-8 TABLETS PER DAY.
     Route: 048

REACTIONS (1)
  - FAECES DISCOLOURED [None]
